FAERS Safety Report 9353250 (Version 1)
Quarter: 2013Q2

REPORT INFORMATION
  Report Type: Spontaneous
  Country: US (occurrence: US)
  Receive Date: 20130618
  Receipt Date: 20130618
  Transmission Date: 20140414
  Serious: No
  Sender: FDA-Public Use
  Company Number: US-PFIZER INC-2013178652

PATIENT
  Sex: Female

DRUGS (1)
  1. MEDROXYPROGESTERONE ACETATE [Suspect]
     Indication: MENORRHAGIA
     Dosage: 150 MG (ONCE IN THREE MONTHS), EVERY 3 MONTHS
     Dates: start: 201206

REACTIONS (2)
  - Metrorrhagia [Unknown]
  - Dysmenorrhoea [Unknown]
